FAERS Safety Report 21540720 (Version 2)
Quarter: 2022Q4

REPORT INFORMATION
  Report Type: Report from Study
  Country: US (occurrence: US)
  Receive Date: 20221102
  Receipt Date: 20221212
  Transmission Date: 20230113
  Serious: Yes (Hospitalization, Other)
  Sender: FDA-Public Use
  Company Number: US-BRISTOL-MYERS SQUIBB COMPANY-2022-130799

PATIENT
  Age: 69 Year
  Sex: Female

DRUGS (2)
  1. ZEPOSIA [Suspect]
     Active Substance: OZANIMOD HYDROCHLORIDE
     Indication: Multiple sclerosis
     Route: 048
     Dates: start: 20220926
  2. ZEPOSIA [Suspect]
     Active Substance: OZANIMOD HYDROCHLORIDE
     Route: 048
     Dates: start: 20221016

REACTIONS (4)
  - Dizziness [Unknown]
  - Hypertensive crisis [Unknown]
  - Urinary tract infection [Unknown]
  - Blood glucose increased [Unknown]

NARRATIVE: CASE EVENT DATE: 20221122
